FAERS Safety Report 9045251 (Version 1)
Quarter: 2013Q1

REPORT INFORMATION
  Report Type: Spontaneous
  Country: US (occurrence: US)
  Receive Date: 20130131
  Receipt Date: 20130131
  Transmission Date: 20140127
  Serious: Yes (Hospitalization, Other)
  Sender: FDA-Public Use
  Company Number: US-SANOFI-AVENTIS-2013SA003282

PATIENT
  Age: 58 Year
  Sex: Female

DRUGS (1)
  1. AUBAGIO [Suspect]
     Indication: MULTIPLE SCLEROSIS
     Route: 048
     Dates: start: 20121221, end: 20130124

REACTIONS (6)
  - Blindness [Unknown]
  - Deafness [Unknown]
  - Muscular weakness [Unknown]
  - Migraine [Unknown]
  - Urinary tract infection [Unknown]
  - Insomnia [Recovering/Resolving]
